FAERS Safety Report 14515279 (Version 3)
Quarter: 2018Q1

REPORT INFORMATION
  Report Type: Spontaneous
  Country: MX (occurrence: MX)
  Receive Date: 20180210
  Receipt Date: 20180219
  Transmission Date: 20180509
  Serious: Yes (Hospitalization, Disabling, Other)
  Sender: FDA-Public Use
  Company Number: MX-ABBVIE-18K-107-2252588-00

PATIENT
  Age: 56 Year
  Sex: Female
  Weight: 60 kg

DRUGS (4)
  1. HUMIRA [Suspect]
     Active Substance: ADALIMUMAB
     Indication: PSORIASIS
     Route: 058
  2. METHOTREXATE. [Concomitant]
     Active Substance: METHOTREXATE
     Indication: PSORIASIS
     Dosage: WEEKLY
     Route: 048
     Dates: start: 20080619, end: 201607
  3. FOLIC ACID. [Concomitant]
     Active Substance: FOLIC ACID
     Indication: PSORIASIS
     Dates: start: 20080619, end: 201607
  4. HUMIRA [Suspect]
     Active Substance: ADALIMUMAB
     Indication: PSORIASIS
     Route: 058
     Dates: start: 20130218, end: 201607

REACTIONS (25)
  - Neurotransmitter level altered [Unknown]
  - Hypotonia [Unknown]
  - Motor dysfunction [Unknown]
  - Paraesthesia [Not Recovered/Not Resolved]
  - Escherichia urinary tract infection [Unknown]
  - Brain stem syndrome [Unknown]
  - Systemic inflammatory response syndrome [Unknown]
  - Decubitus ulcer [Unknown]
  - Supraventricular tachycardia [Unknown]
  - Muscular weakness [Not Recovered/Not Resolved]
  - Pyrexia [Not Recovered/Not Resolved]
  - Muscular weakness [Unknown]
  - Mobility decreased [Unknown]
  - Gait disturbance [Not Recovered/Not Resolved]
  - Urinary incontinence [Not Recovered/Not Resolved]
  - CSF oligoclonal band absent [Unknown]
  - Urinary incontinence [Unknown]
  - Somatosensory evoked potentials abnormal [Unknown]
  - Hypoaesthesia [Unknown]
  - Bacteraemia [Unknown]
  - Lateral medullary syndrome [Unknown]
  - Myelitis transverse [Unknown]
  - Intervertebral disc protrusion [Unknown]
  - Septic shock [Unknown]
  - Pathogen resistance [Unknown]

NARRATIVE: CASE EVENT DATE: 2016
